FAERS Safety Report 6377319-0 (Version None)
Quarter: 2009Q3

REPORT INFORMATION
  Report Type: 
  Country: None (occurrence: None)
  Receive Date: 20090925
  Receipt Date: 20090917
  Transmission Date: 20100115
  Serious: Yes (Other)
  Sender: FDA-Public Use
  Company Number: BE-ABBOTT-09P-013-0580347-00

PATIENT
  Sex: Female

DRUGS (3)
  1. HUMIRA [Suspect]
     Indication: RHEUMATOID ARTHRITIS
     Dates: start: 20080701, end: 20090501
  2. LEDERTREXATE [Concomitant]
     Indication: RHEUMATOID ARTHRITIS
     Dates: start: 19980101, end: 20090501
  3. CETRIZINE [Concomitant]
     Indication: HYPERSENSITIVITY

REACTIONS (2)
  - AUTOIMMUNE HEPATITIS [None]
  - HEPATIC ENZYME ABNORMAL [None]
